FAERS Safety Report 17222914 (Version 1)
Quarter: 2020Q1

REPORT INFORMATION
  Report Type: Spontaneous
  Country: DK (occurrence: DK)
  Receive Date: 20200102
  Receipt Date: 20200102
  Transmission Date: 20200409
  Serious: No
  Sender: FDA-Public Use
  Company Number: DK-ROCHE-2506134

PATIENT
  Age: 48 Year
  Sex: Female

DRUGS (5)
  1. CIRCADIN [Concomitant]
     Active Substance: MELATONIN
     Indication: INSOMNIA
     Dosage: STYRKE: 2 MG
     Route: 048
     Dates: start: 20190301
  2. ACICLOVIR [Concomitant]
     Active Substance: ACYCLOVIR
     Indication: HERPES VIRUS INFECTION
     Dosage: STYRKE: 200 MG
     Route: 048
     Dates: start: 20180906
  3. METOCLOPRAMIDE. [Concomitant]
     Active Substance: METOCLOPRAMIDE
     Indication: NAUSEA
     Dosage: STYRKE: 10 MG
     Route: 048
     Dates: start: 20160705
  4. SUMATRIPTAN. [Concomitant]
     Active Substance: SUMATRIPTAN
     Indication: MIGRAINE
     Dosage: STYRKE: 50 MG
     Route: 048
     Dates: start: 20150405
  5. OCREVUS [Suspect]
     Active Substance: OCRELIZUMAB
     Indication: MULTIPLE SCLEROSIS
     Route: 042
     Dates: start: 20190426

REACTIONS (1)
  - Anogenital warts [Unknown]
